FAERS Safety Report 7249723-X (Version None)
Quarter: 2011Q1

REPORT INFORMATION
  Report Type: 
  Country: None (occurrence: None)
  Receive Date: 20110128
  Receipt Date: 20110121
  Transmission Date: 20110831
  Serious: Yes (Other)
  Sender: FDA-Public Use
  Company Number: US-PFIZER INC-US-WYE-H17478810

PATIENT
  Sex: Female
  Weight: 56.3 kg

DRUGS (6)
  1. NEXIUM [Concomitant]
  2. CLARITIN [Concomitant]
  3. NEURONTIN [Suspect]
     Dosage: UNK
     Route: 065
     Dates: start: 20100901
  4. RELISTOR [Suspect]
     Indication: CONSTIPATION
     Dosage: ONE INJECTION, WHICH SHE TAKES INTERMITTENTLY (EVERY 3 TO 4 DAYS OR EVERY 4 TO 5 DAYS)
     Route: 065
     Dates: start: 20100501
  5. LISINOPRIL [Concomitant]
  6. PERCOCET [Concomitant]

REACTIONS (5)
  - NAUSEA [None]
  - OEDEMA PERIPHERAL [None]
  - DYSKINESIA [None]
  - ABDOMINAL PAIN UPPER [None]
  - APHAGIA [None]
